FAERS Safety Report 9314424 (Version 1)
Quarter: 2013Q3

REPORT INFORMATION
  Report Type: Spontaneous
  Country: US (occurrence: None)
  Receive Date: 20130524
  Receipt Date: 20130524
  Transmission Date: 20140515
  Serious: Yes (Hospitalization)
  Sender: FDA-Public Use
  Company Number: None

PATIENT
  Age: 65 Year
  Sex: Male

DRUGS (2)
  1. LIDOCAINE [Suspect]
     Indication: ROTATOR CUFF SYNDROME
     Dosage: CC KENALOG, 8CC LIDO 1 %
     Dates: start: 20130416
  2. LIDOCAINE [Suspect]
     Indication: ROTATOR CUFF SYNDROME
     Dosage: CC KENALOG, 8CC LIDO 1 %
     Dates: start: 20130416

REACTIONS (2)
  - Culture positive [None]
  - Staphylococcus test positive [None]
